FAERS Safety Report 24900441 (Version 1)
Quarter: 2025Q1

REPORT INFORMATION
  Report Type: Spontaneous
  Country: CN (occurrence: CN)
  Receive Date: 20250129
  Receipt Date: 20250129
  Transmission Date: 20250409
  Serious: Yes (Life-Threatening, Other)
  Sender: FRESENIUS KABI
  Company Number: CN-FreseniusKabi-FK202501539

PATIENT
  Age: 13 Year
  Sex: Female
  Weight: 58 kg

DRUGS (2)
  1. PROPOFOL [Suspect]
     Active Substance: PROPOFOL
     Indication: Induction of anaesthesia
     Dosage: FOA - INJECTION
     Route: 042
     Dates: start: 20250123, end: 20250123
  2. REMIMAZOLAM BESYLATE [Suspect]
     Active Substance: REMIMAZOLAM BESYLATE
     Indication: Induction of anaesthesia
     Dosage: FOA - INJECTION
     Route: 042
     Dates: start: 20250123, end: 20250123

REACTIONS (5)
  - Anaphylactic shock [Recovering/Resolving]
  - Rash [Recovering/Resolving]
  - Erythema [Recovering/Resolving]
  - Swelling face [Recovering/Resolving]
  - Conjunctival hyperaemia [Recovering/Resolving]

NARRATIVE: CASE EVENT DATE: 20250123
